FAERS Safety Report 16956960 (Version 1)
Quarter: 2019Q4

REPORT INFORMATION
  Report Type: Spontaneous
  Country: US (occurrence: US)
  Receive Date: 20191024
  Receipt Date: 20191024
  Transmission Date: 20200122
  Serious: No
  Sender: FDA-Public Use
  Company Number: US-BAYER-2019-190900

PATIENT
  Age: 42 Year
  Sex: Male
  Weight: 93 kg

DRUGS (3)
  1. LOTRIMIN ULTRA ANTIFUNGAL [Suspect]
     Active Substance: BUTENAFINE HYDROCHLORIDE
     Indication: TINEA CRURIS
     Dosage: UNK
     Route: 061
     Dates: start: 201909, end: 201910
  2. TINACTIN [Suspect]
     Active Substance: TOLNAFTATE
     Indication: TINEA PEDIS
     Dosage: UNK
     Route: 061
  3. VITAMIN D [VITAMIN D NOS] [Concomitant]
     Active Substance: VITAMIN D NOS
     Dosage: UNK

REACTIONS (1)
  - Drug ineffective [Unknown]
